FAERS Safety Report 5406802-7 (Version None)
Quarter: 2007Q3

REPORT INFORMATION
  Report Type: 
  Country: None (occurrence: None)
  Receive Date: 20070802
  Receipt Date: 20070411
  Transmission Date: 20080115
  Serious: Yes (Hospitalization)
  Sender: FDA-Public Use
  Company Number: 000#5#2007-00122

PATIENT
  Age: 61 Year
  Sex: Male

DRUGS (14)
  1. ROTIGOTINE (DOSE UNKNOWN), PATCH (SILICONE) (ROTIGOTINE) [Suspect]
     Indication: PARKINSON'S DISEASE
     Dosage: 10 MG/24H (10 MG/24H 1 IN 1 DAY (S)) TRANSDERMAL
     Route: 062
     Dates: start: 20050128
  2. LEVODOPA BENSERAZIDE HYDROCHLORIDE (BENSERAZIDE HYDROCHLORIDE, LEVODOP [Concomitant]
  3. OMEPRZOLE MAGNESIUM (OMEPRZOLE MAGNESIUM) [Concomitant]
  4. ACETAMINOPHEN [Concomitant]
  5. TETANUS TOXOID (TETANUS TOXOID) [Concomitant]
  6. TRAMADOL HCL [Concomitant]
  7. FLUTICASONE PROPIONATE [Concomitant]
  8. SALBUTAMOL (SALBUTAMOL) [Concomitant]
  9. CLOPIDOGREL BISULFATE [Concomitant]
  10. COLOXYL WITH SENNA (DOCUSATE SODIUM, SENNOSIDE A+B) [Concomitant]
  11. OXYCODONE HCL [Concomitant]
  12. DIAZEPAM [Concomitant]
  13. OXYCODONE HCL [Concomitant]
  14. HEPARIN [Concomitant]

REACTIONS (7)
  - CONTUSION [None]
  - HEAD INJURY [None]
  - MALAISE [None]
  - PARKINSON'S DISEASE [None]
  - ROAD TRAFFIC ACCIDENT [None]
  - SLEEP ATTACKS [None]
  - SOMNOLENCE [None]
